FAERS Safety Report 8648140 (Version 4)
Quarter: 2013Q2

REPORT INFORMATION
  Report Type: Report from Study
  Country: AU (occurrence: AU)
  Receive Date: 20120703
  Receipt Date: 20130430
  Transmission Date: 20140414
  Serious: Yes (Hospitalization)
  Sender: FDA-Public Use
  Company Number: PHHY2012AU056413

PATIENT
  Sex: Male
  Weight: 93.7 kg

DRUGS (6)
  1. CLOZARIL [Suspect]
     Dosage: 700 MG, UNK
     Route: 048
     Dates: start: 20060501, end: 20120922
  2. ATENOLOL [Suspect]
     Dosage: 50 MG, MANE
     Route: 048
  3. SIMVASTATIN [Concomitant]
     Dosage: 20 MG, MANE
     Route: 048
  4. FLUOXETINE [Concomitant]
     Dosage: 60 MG, MANE
     Route: 048
  5. DOCUSATE [Concomitant]
     Dosage: 100 MG, UNK
     Route: 048
  6. SENNA [Concomitant]
     Dosage: 8 MG
     Route: 048

REACTIONS (7)
  - Mental disorder [Unknown]
  - Mental impairment [Unknown]
  - Weight decreased [Recovered/Resolved with Sequelae]
  - Tachycardia [Recovered/Resolved with Sequelae]
  - Hyperhidrosis [Recovered/Resolved with Sequelae]
  - Neutropenia [Unknown]
  - Leukopenia [Unknown]
